FAERS Safety Report 7887521 (Version 3)
Quarter: 2013Q1

REPORT INFORMATION
  Report Type: Report from Study
  Country: US (occurrence: US)
  Receive Date: 20110406
  Receipt Date: 20130318
  Transmission Date: 20140127
  Serious: Yes (Hospitalization)
  Sender: FDA-Public Use
  Company Number: US-EISAI INC-E7272-00088-CLI-US

PATIENT
  Age: 65 Year
  Sex: Male

DRUGS (23)
  1. ONTAK [Suspect]
     Indication: MALIGNANT MELANOMA
     Route: 041
     Dates: start: 20110214
  2. BENICAR [Concomitant]
     Indication: HYPERTENSION
     Route: 048
     Dates: start: 20100207, end: 20110316
  3. CARTIA XT [Concomitant]
     Indication: HYPERTENSION
     Route: 048
     Dates: start: 20100207
  4. ZOLOFT [Concomitant]
     Indication: DEPRESSION
     Route: 048
     Dates: start: 20101206
  5. PREVACID [Concomitant]
     Indication: GASTROOESOPHAGEAL REFLUX DISEASE
     Route: 048
     Dates: start: 20101129
  6. SUCRALFATE [Concomitant]
     Indication: DYSPHAGIA
     Route: 048
     Dates: start: 20101230
  7. SUCRALFATE [Concomitant]
     Indication: OESOPHAGITIS
  8. COMPAZINE [Concomitant]
     Indication: PROPHYLAXIS OF NAUSEA AND VOMITING
     Route: 048
     Dates: start: 20110207, end: 20110222
  9. COMPAZINE [Concomitant]
     Indication: PROPHYLAXIS OF NAUSEA AND VOMITING
  10. HYDROCODONE [Concomitant]
     Indication: PAIN
     Route: 048
     Dates: start: 20101206
  11. HYDROCODONE [Concomitant]
     Indication: RHEUMATOID ARTHRITIS
  12. MAALOX [Concomitant]
     Indication: PROPHYLAXIS OF NAUSEA AND VOMITING
     Route: 048
     Dates: start: 20110214
  13. ACETAMINOPHEN [Concomitant]
     Indication: PREMEDICATION
     Route: 048
     Dates: start: 20110214, end: 20110214
  14. BENADRYL [Concomitant]
     Indication: PREMEDICATION
     Route: 041
     Dates: start: 20110214, end: 20110214
  15. TYLENOL [Concomitant]
     Indication: INSOMNIA
     Route: 048
     Dates: start: 20110214, end: 20110214
  16. AMBIEN [Concomitant]
     Indication: INSOMNIA
     Route: 048
     Dates: start: 20110215, end: 20110301
  17. ZANTAC [Concomitant]
     Indication: PREMEDICATION
     Route: 041
     Dates: start: 20110218, end: 20110220
  18. VIOCODIN [Concomitant]
     Indication: GASTROINTESTINAL PAIN
     Route: 048
     Dates: start: 20110218, end: 20110220
  19. SODIUM CHLORIDE [Concomitant]
     Indication: GASTROINTESTINAL PAIN
     Route: 041
     Dates: start: 20110218
  20. PRILOSEC [Concomitant]
     Indication: GASTROINTESTINAL PAIN
     Route: 048
     Dates: start: 20110218
  21. KYTRIL [Concomitant]
     Indication: NAUSEA
     Dates: start: 20110215
  22. ZOFRAN [Concomitant]
     Indication: NAUSEA
     Dates: start: 20110222
  23. ZOFRAN [Concomitant]
     Indication: VOMITING

REACTIONS (1)
  - Atrial tachycardia [Recovered/Resolved]
